FAERS Safety Report 13909209 (Version 1)
Quarter: 2017Q3

REPORT INFORMATION
  Report Type: Spontaneous
  Country: NL (occurrence: NL)
  Receive Date: 20170828
  Receipt Date: 20170828
  Transmission Date: 20171127
  Serious: Yes (Other)
  Sender: FDA-Public Use
  Company Number: NL-ROCHE-1982144

PATIENT
  Age: 63 Year
  Sex: Male

DRUGS (9)
  1. XOLAIR [Suspect]
     Active Substance: OMALIZUMAB
     Indication: ASTHMA
     Route: 058
     Dates: start: 20110318, end: 20150902
  2. AVAMYS [Concomitant]
     Active Substance: FLUTICASONE FUROATE
     Indication: PRODUCT USED FOR UNKNOWN INDICATION
     Dosage: 1 DF, QD (27.5 MCG/DO FLACON 120 DOSES)
     Route: 065
  3. SALBUTAMOL [Concomitant]
     Active Substance: ALBUTEROL
     Indication: ASTHMA
     Dosage: 100 UG, UNK
     Route: 065
  4. FOSTER (NETHERLANDS) [Concomitant]
     Indication: PRODUCT USED FOR UNKNOWN INDICATION
     Dosage: 2 DF, QD
     Route: 065
  5. FLUTICASONE. [Concomitant]
     Active Substance: FLUTICASONE
     Indication: ASTHMA
     Route: 065
  6. FEXOFENADINE [Concomitant]
     Active Substance: FEXOFENADINE\FEXOFENADINE HYDROCHLORIDE
     Indication: PRODUCT USED FOR UNKNOWN INDICATION
     Route: 065
  7. AERIUS (NETHERLANDS) [Concomitant]
     Indication: PRODUCT USED FOR UNKNOWN INDICATION
     Route: 065
  8. XOLAIR [Suspect]
     Active Substance: OMALIZUMAB
     Route: 058
     Dates: start: 20160101
  9. XOLAIR [Suspect]
     Active Substance: OMALIZUMAB
     Dosage: 600 MG, UNK (ONCE PER 4 WEEKS)
     Route: 058
     Dates: start: 20160229, end: 20160523

REACTIONS (6)
  - Ocular myasthenia [Recovered/Resolved]
  - Strabismus [Recovered/Resolved]
  - Extraocular muscle paresis [Recovered/Resolved]
  - Diplopia [Recovered/Resolved]
  - Fatigue [Recovering/Resolving]
  - Eyelid ptosis [Recovered/Resolved]

NARRATIVE: CASE EVENT DATE: 2015
